FAERS Safety Report 17448220 (Version 3)
Quarter: 2021Q3

REPORT INFORMATION
  Report Type: Report from Study
  Country: DE (occurrence: DE)
  Receive Date: 20200222
  Receipt Date: 20210906
  Transmission Date: 20211014
  Serious: Yes (Other)
  Sender: FDA-Public Use
  Company Number: NVSC2020DE048751

PATIENT
  Sex: Female
  Weight: 60 kg

DRUGS (3)
  1. DEFERASIROX. [Suspect]
     Active Substance: DEFERASIROX
     Indication: IRON OVERLOAD
     Dosage: 90 MG (14 MG/KG BODYWEIGHT/DAY 1 TABLET AT 90 MG AND 2)
     Route: 048
     Dates: start: 20190228, end: 20190829
  2. DEFERASIROX. [Suspect]
     Active Substance: DEFERASIROX
     Dosage: 360 MG (21 MG/KG BODYWEIGHT/DAY  2 TABLET AT 90 MG AND 3 TABLET AT 360 MG)
     Route: 048
     Dates: start: 20190830, end: 20200212
  3. DEFERASIROX. [Suspect]
     Active Substance: DEFERASIROX
     Dosage: 13.5 MG/KG
     Route: 065
     Dates: start: 20200317

REACTIONS (3)
  - Epistaxis [Recovered/Resolved]
  - Pemphigoid [Unknown]
  - Rash [Recovering/Resolving]

NARRATIVE: CASE EVENT DATE: 201903
